FAERS Safety Report 21454526 (Version 1)
Quarter: 2022Q4

REPORT INFORMATION
  Report Type: Spontaneous
  Country: US (occurrence: None)
  Receive Date: 20221013
  Receipt Date: 20221013
  Transmission Date: 20230113
  Serious: Yes (Death)
  Sender: FDA-Public Use
  Company Number: None

PATIENT
  Sex: Male

DRUGS (7)
  1. TACROLIMUS [Suspect]
     Active Substance: TACROLIMUS
     Indication: Renal transplant
     Dosage: 0.5 MG ORAL??TAKE ONE CAPSULE BY MOUTH EVERY 12 HOURS
     Route: 048
     Dates: start: 20180809
  2. ACCUPRIL [Concomitant]
  3. DILTIAZEM [Concomitant]
     Active Substance: DILTIAZEM
  4. INSULIN [Concomitant]
  5. LIPITOR [Concomitant]
     Active Substance: ATORVASTATIN CALCIUM
  6. OMEGA 3 [Concomitant]
     Active Substance: CAPSAICIN
  7. PROGRAF [Concomitant]

REACTIONS (1)
  - Death [None]
